FAERS Safety Report 4575555-7 (Version None)
Quarter: 2005Q1

REPORT INFORMATION
  Report Type: 
  Country: None (occurrence: None)
  Receive Date: 20050209
  Receipt Date: 20041018
  Transmission Date: 20050727
  Serious: Yes (Other)
  Sender: FDA-Public Use
  Company Number: GB-BRISTOL-MYERS SQUIBB COMPANY-12734489

PATIENT
  Age: 65 Year
  Sex: Female
  Weight: 126 kg

DRUGS (6)
  1. CISPLATIN [Suspect]
     Indication: BLADDER CANCER
     Dosage: 1ST DOSE: 04JUN04
     Dates: start: 20040928, end: 20040928
  2. GEMCITABINE [Suspect]
     Indication: BLADDER CANCER
     Dosage: 1ST DOSE: 03JUN04
     Dates: start: 20040928, end: 20040928
  3. PRAVASTATIN [Concomitant]
     Dates: start: 20040401
  4. METFORMIN HCL [Concomitant]
     Dates: start: 20040401
  5. THYROXINE [Concomitant]
     Dates: start: 20040401
  6. ASPIRIN [Concomitant]

REACTIONS (2)
  - EMBOLISM [None]
  - THROMBOSIS [None]
